FAERS Safety Report 8057614-X (Version None)
Quarter: 2012Q1

REPORT INFORMATION
  Report Type: 
  Country: None (occurrence: None)
  Receive Date: 20120120
  Receipt Date: 20120111
  Transmission Date: 20120608
  Serious: No
  Sender: FDA-Public Use
  Company Number: US-BIOGENIDEC-2010BI009296

PATIENT
  Sex: Female

DRUGS (2)
  1. TYSABRI [Suspect]
     Route: 042
     Dates: start: 20091113, end: 20110502
  2. TYSABRI [Suspect]
     Indication: MULTIPLE SCLEROSIS
     Route: 042
     Dates: start: 20061016, end: 20070416

REACTIONS (25)
  - VISION BLURRED [None]
  - DIZZINESS [None]
  - SLEEP APNOEA SYNDROME [None]
  - GAIT DISTURBANCE [None]
  - MUSCULOSKELETAL DISORDER [None]
  - MUSCULOSKELETAL STIFFNESS [None]
  - BACK PAIN [None]
  - MEMORY IMPAIRMENT [None]
  - RESTLESS LEGS SYNDROME [None]
  - INSOMNIA [None]
  - DYSGEUSIA [None]
  - ANXIETY [None]
  - BALANCE DISORDER [None]
  - READING DISORDER [None]
  - HYPOACUSIS [None]
  - MULTIPLE SCLEROSIS [None]
  - STRESS [None]
  - LOWER EXTREMITY MASS [None]
  - HYPOAESTHESIA [None]
  - COGNITIVE DISORDER [None]
  - NECK PAIN [None]
  - MUSCULAR WEAKNESS [None]
  - MULTIPLE SCLEROSIS RELAPSE [None]
  - MUSCLE SPASTICITY [None]
  - FATIGUE [None]
